FAERS Safety Report 10427107 (Version 1)
Quarter: 2014Q3

REPORT INFORMATION
  Report Type: Spontaneous
  Country: US (occurrence: US)
  Receive Date: 20140903
  Receipt Date: 20140903
  Transmission Date: 20150326
  Serious: Yes (Other)
  Sender: FDA-Public Use
  Company Number: US-SA-2014SA116565

PATIENT
  Age: 75 Year
  Sex: Female

DRUGS (1)
  1. FLUDARA [Suspect]
     Active Substance: FLUDARABINE PHOSPHATE
     Indication: CHRONIC LYMPHOCYTIC LEUKAEMIA
     Dosage: DAY 1-3
     Route: 042
     Dates: start: 20130416, end: 20130605

REACTIONS (2)
  - Fall [Unknown]
  - Femur fracture [Unknown]
